FAERS Safety Report 8354184-3 (Version None)
Quarter: 2012Q2

REPORT INFORMATION
  Report Type: 
  Country: None (occurrence: None)
  Receive Date: 20120511
  Receipt Date: 20120507
  Transmission Date: 20120825
  Serious: Yes (Life-Threatening, Hospitalization, Other)
  Sender: FDA-Public Use
  Company Number: PHHY2012MX039517

PATIENT
  Age: 49 Year
  Sex: Male

DRUGS (1)
  1. NAPROXEN [Suspect]
     Indication: ARTHRALGIA

REACTIONS (10)
  - ABDOMINAL PAIN UPPER [None]
  - AGRANULOCYTOSIS [None]
  - SKIN LESION [None]
  - PERIODONTAL INFECTION [None]
  - PYREXIA [None]
  - LYMPHOCYTIC INFILTRATION [None]
  - GASTRITIS EROSIVE [None]
  - NEUTROPENIA [None]
  - HYPERHIDROSIS [None]
  - OESOPHAGEAL CANDIDIASIS [None]
